FAERS Safety Report 10384902 (Version 1)
Quarter: 2014Q3

REPORT INFORMATION
  Report Type: Spontaneous
  Country: IT (occurrence: None)
  Receive Date: 20140812
  Receipt Date: 20140812
  Transmission Date: 20150326
  Serious: Yes (Other)
  Sender: FDA-Public Use
  Company Number: AUR-APL-2014-08346

PATIENT
  Age: 13 Year
  Sex: Male

DRUGS (1)
  1. AMOXICILLIN (AMOXICILLIN) UNKNOWN [Suspect]
     Active Substance: AMOXICILLIN
     Indication: WOUND
     Route: 048
     Dates: start: 20140729, end: 20140730

REACTIONS (1)
  - Angioedema [None]

NARRATIVE: CASE EVENT DATE: 20140730
